FAERS Safety Report 6829675-4 (Version None)
Quarter: 2010Q3

REPORT INFORMATION
  Report Type: 
  Country: None (occurrence: None)
  Receive Date: 20100709
  Receipt Date: 20070509
  Transmission Date: 20110219
  Serious: No
  Sender: FDA-Public Use
  Company Number: US-PFIZER INC-2007017551

PATIENT
  Sex: Male
  Weight: 67.13 kg

DRUGS (12)
  1. CHANTIX [Suspect]
     Indication: SMOKING CESSATION THERAPY
     Dates: start: 20070201
  2. NIASPAN [Concomitant]
  3. COZAAR [Concomitant]
  4. HYDROCHLOROTHIAZIDE [Concomitant]
  5. PLAVIX [Concomitant]
  6. NORVASC [Concomitant]
  7. ACETYLSALICYLIC ACID [Concomitant]
  8. ISOSORBIDE MONONITRATE [Concomitant]
  9. SIMVASTATIN [Concomitant]
  10. TOPROL-XL [Concomitant]
  11. ACIPHEX [Concomitant]
     Indication: GASTROOESOPHAGEAL REFLUX DISEASE
  12. PAROXETINE HCL [Concomitant]

REACTIONS (3)
  - ABDOMINAL DISTENSION [None]
  - ABNORMAL DREAMS [None]
  - FLATULENCE [None]
